FAERS Safety Report 17445427 (Version 2)
Quarter: 2020Q1

REPORT INFORMATION
  Report Type: Report from Study
  Country: IT (occurrence: IT)
  Receive Date: 20200221
  Receipt Date: 20200305
  Transmission Date: 20200409
  Serious: Yes (Death, Hospitalization)
  Sender: FDA-Public Use
  Company Number: IT-VERASTEM-2020-00032

PATIENT

DRUGS (1)
  1. IPI-145 [Suspect]
     Active Substance: DUVELISIB
     Indication: NON-HODGKIN^S LYMPHOMA
     Dosage: 5 MG, BID
     Dates: start: 20150703, end: 20200129

REACTIONS (1)
  - Pseudomonal sepsis [Fatal]

NARRATIVE: CASE EVENT DATE: 20200212
